FAERS Safety Report 16575786 (Version 2)
Quarter: 2019Q3

REPORT INFORMATION
  Report Type: Spontaneous
  Country: RS (occurrence: RS)
  Receive Date: 20190716
  Receipt Date: 20190806
  Transmission Date: 20191004
  Serious: Yes (Other)
  Sender: FDA-Public Use
  Company Number: RS-ROCHE-2354197

PATIENT
  Age: 39 Year
  Sex: Female

DRUGS (7)
  1. RHOGAM [Concomitant]
     Active Substance: HUMAN RHO(D) IMMUNE GLOBULIN
  2. CONTROLOC [Concomitant]
     Active Substance: PANTOPRAZOLE SODIUM
     Route: 065
  3. ALPHA D3 [Concomitant]
     Active Substance: ALFACALCIDOL
     Route: 065
  4. EUTHYROX [Concomitant]
     Active Substance: LEVOTHYROXINE SODIUM
     Indication: HYPOTHYROIDISM
     Route: 065
  5. ACTEMRA [Suspect]
     Active Substance: TOCILIZUMAB
     Indication: RHEUMATOID ARTHRITIS
     Route: 042
     Dates: start: 2014, end: 20190627
  6. ARCOXIA [Suspect]
     Active Substance: ETORICOXIB
     Indication: ARTHRALGIA
     Route: 065
  7. PRONISON [Concomitant]
     Active Substance: PREDNISONE
     Route: 065

REACTIONS (4)
  - Decreased embryo viability [Unknown]
  - Maternal exposure during pregnancy [Unknown]
  - Urinary tract infection enterococcal [Unknown]
  - Escherichia urinary tract infection [Unknown]
